FAERS Safety Report 5976103-7 (Version None)
Quarter: 2008Q4

REPORT INFORMATION
  Report Type: 
  Country: None (occurrence: None)
  Receive Date: 20081202
  Receipt Date: 20081121
  Transmission Date: 20090506
  Serious: Yes (Other)
  Sender: FDA-Public Use
  Company Number: JP-BAXTER-2008BH012842

PATIENT
  Age: 11 Year
  Sex: Female

DRUGS (14)
  1. ENDOXAN BAXTER [Suspect]
     Indication: NEPHROBLASTOMA
     Dosage: DOSE UNIT:GRAMS PER METERS SQUARED
     Route: 065
  2. ENDOXAN BAXTER [Suspect]
     Indication: METASTASES TO LUNG
     Dosage: DOSE UNIT:GRAMS PER METERS SQUARED
     Route: 065
  3. IFOSFAMIDE [Suspect]
     Indication: NEPHROBLASTOMA
     Dosage: DOSE UNIT:GRAMS PER METERS SQUARED
     Route: 065
  4. IFOSFAMIDE [Suspect]
     Indication: METASTASES TO LUNG
     Dosage: DOSE UNIT:GRAMS PER METERS SQUARED
     Route: 065
  5. ETOPOSIDE [Suspect]
     Indication: NEPHROBLASTOMA
     Route: 065
  6. ETOPOSIDE [Suspect]
     Indication: METASTASES TO LUNG
     Route: 065
  7. DOXORUBICIN HCL [Suspect]
     Indication: NEPHROBLASTOMA
     Route: 065
  8. DOXORUBICIN HCL [Suspect]
     Indication: METASTASES TO LUNG
     Route: 065
  9. CARBOPLATIN [Suspect]
     Indication: NEPHROBLASTOMA
     Route: 065
  10. CARBOPLATIN [Suspect]
     Indication: METASTASES TO LUNG
     Route: 065
  11. DACTINOMYCIN [Concomitant]
     Indication: NEPHROBLASTOMA
     Route: 065
  12. DACTINOMYCIN [Concomitant]
     Indication: METASTASES TO LUNG
     Route: 065
  13. VINCRISTINE SULFATE [Concomitant]
     Indication: NEPHROBLASTOMA
     Route: 065
  14. VINCRISTINE SULFATE [Concomitant]
     Indication: METASTASES TO LUNG
     Route: 065

REACTIONS (2)
  - HYPOXIA [None]
  - INTERSTITIAL LUNG DISEASE [None]
